FAERS Safety Report 9477873 (Version 1)
Quarter: 2013Q3

REPORT INFORMATION
  Report Type: Spontaneous
  Country: US (occurrence: None)
  Receive Date: 20130826
  Receipt Date: 20130826
  Transmission Date: 20140515
  Serious: Yes (Life-Threatening)
  Sender: FDA-Public Use
  Company Number: None

PATIENT
  Age: 42 Year
  Sex: Male
  Weight: 80.5 kg

DRUGS (1)
  1. METHOCARBAMOL [Suspect]
     Indication: PAIN
     Route: 048
     Dates: start: 20130522, end: 20130522

REACTIONS (6)
  - Urticaria [None]
  - Hyperhidrosis [None]
  - Dyspnoea [None]
  - Rash [None]
  - Anaphylactic reaction [None]
  - Throat tightness [None]
